FAERS Safety Report 7328194-9 (Version None)
Quarter: 2011Q1

REPORT INFORMATION
  Report Type: 
  Country: None (occurrence: None)
  Receive Date: 20110303
  Receipt Date: 20110225
  Transmission Date: 20110831
  Serious: Yes (Death)
  Sender: FDA-Public Use
  Company Number: JP-JNJFOC-20110207408

PATIENT
  Age: 36 Year
  Sex: Female

DRUGS (6)
  1. DEPAKENE [Concomitant]
     Route: 048
  2. AKINETON [Concomitant]
     Route: 048
  3. LAXOBERON [Concomitant]
     Route: 048
  4. RISPERDAL CONSTA [Suspect]
     Indication: PRODUCT USED FOR UNKNOWN INDICATION
     Route: 030
  5. BENZALIN [Concomitant]
     Route: 048
  6. HALCION [Concomitant]
     Route: 048

REACTIONS (1)
  - MYOCARDIAL INFARCTION [None]
